FAERS Safety Report 13400449 (Version 5)
Quarter: 2021Q4

REPORT INFORMATION
  Report Type: Report from Study
  Country: US (occurrence: US)
  Receive Date: 20170404
  Receipt Date: 20211213
  Transmission Date: 20220303
  Serious: Yes (Hospitalization, Congenital Anomaly)
  Sender: FDA-Public Use
  Company Number: US-UCBSA-2017012599

PATIENT
  Sex: Male

DRUGS (5)
  1. CERTOLIZUMAB PEGOL [Suspect]
     Active Substance: CERTOLIZUMAB PEGOL
     Indication: Rheumatoid arthritis
     Dosage: 200 MG, 2X/MONTH
     Route: 064
     Dates: start: 20160202, end: 20160930
  2. PANTOPRAZOLE SODIUM [Concomitant]
     Active Substance: PANTOPRAZOLE SODIUM
     Indication: Abdominal pain upper
     Dosage: UNK
     Route: 064
     Dates: start: 20160118, end: 20161101
  3. TYLENOL [Concomitant]
     Active Substance: ACETAMINOPHEN
     Indication: Headache
     Dosage: 500 MILLIGRAM
     Route: 064
     Dates: start: 20160118, end: 20160906
  4. CHOLECALCIFEROL [Concomitant]
     Active Substance: CHOLECALCIFEROL
     Indication: Product used for unknown indication
     Dosage: 1000 IU, ONCE DAILY (QD)
     Route: 064
     Dates: start: 20160118, end: 20161101
  5. VITAMINS [Concomitant]
     Active Substance: VITAMINS
     Indication: Product used for unknown indication
     Dosage: 1 DF, ONCE DAILY (QD)
     Route: 064
     Dates: start: 20160118, end: 20161101

REACTIONS (7)
  - Escherichia urinary tract infection [Recovered/Resolved]
  - Congenital vesicoureteric reflux [Unknown]
  - Congenital hydronephrosis [Unknown]
  - Marfan^s syndrome [Unknown]
  - Lens abnormality, congenital [Unknown]
  - Ocular albinism [Unknown]
  - Maternal exposure before pregnancy [Unknown]

NARRATIVE: CASE EVENT DATE: 20160202
